FAERS Safety Report 18177050 (Version 3)
Quarter: 2020Q3

REPORT INFORMATION
  Report Type: Spontaneous
  Country: JP (occurrence: JP)
  Receive Date: 20200820
  Receipt Date: 20200925
  Transmission Date: 20201103
  Serious: Yes (Hospitalization)
  Sender: FDA-Public Use
  Company Number: JP-AMGEN-JPNSP2020131679

PATIENT
  Age: 75 Year
  Sex: Female

DRUGS (3)
  1. EVENITY [Suspect]
     Active Substance: ROMOSOZUMAB-AQQG
     Indication: OSTEOPOROSIS
     Dosage: 210 MILLIGRAM
     Route: 058
  2. COSPANON [Concomitant]
     Active Substance: FLOPROPIONE
     Dosage: 240 MILLIGRAM, QD
  3. URSO [Concomitant]
     Active Substance: URSODIOL
     Dosage: 300 MILLIGRAM, QD

REACTIONS (1)
  - Cholelithiasis [Recovering/Resolving]
